FAERS Safety Report 15390200 (Version 1)
Quarter: 2018Q3

REPORT INFORMATION
  Report Type: Spontaneous
  Country: US (occurrence: US)
  Receive Date: 20180908
  Receipt Date: 20180908
  Transmission Date: 20181010
  Serious: Yes (Hospitalization, Disabling, Other)
  Sender: FDA-Public Use
  Company Number: None

PATIENT
  Age: 63 Year
  Sex: Male
  Weight: 63.9 kg

DRUGS (2)
  1. APIXABAN [Suspect]
     Active Substance: APIXABAN
     Indication: DEEP VEIN THROMBOSIS
     Dates: start: 20180328, end: 20180426
  2. RIVAROXABAN [Suspect]
     Active Substance: RIVAROXABAN
     Indication: THROMBOSIS PROPHYLAXIS
     Route: 048
     Dates: start: 20180427, end: 20180517

REACTIONS (14)
  - Petechiae [None]
  - Skin burning sensation [None]
  - Arthralgia [None]
  - Pancytopenia [None]
  - Purpura [None]
  - Hepatic enzyme increased [None]
  - Tendonitis [None]
  - Gait inability [None]
  - Scrotal haematocoele [None]
  - Oedema peripheral [None]
  - Skin haemorrhage [None]
  - Hypersensitivity vasculitis [None]
  - Muscle haemorrhage [None]
  - Condition aggravated [None]

NARRATIVE: CASE EVENT DATE: 20180331
